FAERS Safety Report 19894689 (Version 1)
Quarter: 2021Q3

REPORT INFORMATION
  Report Type: Report from Study
  Country: US (occurrence: US)
  Receive Date: 20210929
  Receipt Date: 20210929
  Transmission Date: 20211014
  Serious: Yes (Other)
  Sender: FDA-Public Use
  Company Number: US-ALNYLAM PHARMACEUTICALS, INC.-ALN-2021-002355

PATIENT

DRUGS (2)
  1. GIVLAARI [Suspect]
     Active Substance: GIVOSIRAN SODIUM
     Dosage: 189 MILLIGRAM, MONTHLY
     Route: 058
     Dates: start: 2020
  2. GIVLAARI [Suspect]
     Active Substance: GIVOSIRAN SODIUM
     Indication: PORPHYRIA ACUTE
     Dosage: 189 MILLIGRAM, MONTHLY
     Route: 058
     Dates: start: 20210827

REACTIONS (5)
  - Therapy cessation [Recovered/Resolved]
  - Injection site reaction [Unknown]
  - Fatigue [Unknown]
  - Abortion spontaneous [Unknown]
  - Nausea [Unknown]
